FAERS Safety Report 24146937 (Version 2)
Quarter: 2024Q3

REPORT INFORMATION
  Report Type: Report from Study
  Country: FR (occurrence: FR)
  Receive Date: 20240729
  Receipt Date: 20240902
  Transmission Date: 20241016
  Serious: Yes (Other)
  Sender: PFIZER
  Company Number: FR-SEATTLE GENETICS-2021SGN02205

PATIENT
  Age: 50 Year
  Sex: Female
  Weight: 126 kg

DRUGS (9)
  1. TUCATINIB [Suspect]
     Active Substance: TUCATINIB
     Indication: HER2 positive breast cancer
     Dosage: 300 MG, BID
     Route: 048
     Dates: start: 20210219, end: 20210319
  2. TUCATINIB [Suspect]
     Active Substance: TUCATINIB
     Dosage: 500 MG/DAY
     Route: 048
     Dates: start: 20210325
  3. TUCATINIB [Suspect]
     Active Substance: TUCATINIB
     Dosage: 250 MG, BID
     Route: 048
     Dates: start: 20210414
  4. TRASTUZUMAB [Suspect]
     Active Substance: TRASTUZUMAB
     Indication: HER2 positive breast cancer
     Dosage: 8 MG/KG, CYCLIC
     Route: 042
     Dates: start: 20210219
  5. TRASTUZUMAB [Suspect]
     Active Substance: TRASTUZUMAB
     Dosage: 6 MG/KG
     Route: 042
     Dates: start: 20210312
  6. CAPECITABINE [Suspect]
     Active Substance: CAPECITABINE
     Indication: HER2 positive breast cancer
     Dosage: 1600 MG, BID
     Route: 048
     Dates: start: 20210219
  7. CAPECITABINE [Suspect]
     Active Substance: CAPECITABINE
     Dosage: 1300 MG, BID
     Route: 048
     Dates: start: 20210430
  8. METOCLOPRAMIDE [Concomitant]
     Active Substance: METOCLOPRAMIDE
  9. PREGABALIN [Concomitant]
     Active Substance: PREGABALIN

REACTIONS (4)
  - Hepatic cytolysis [Recovered/Resolved]
  - Hyperbilirubinaemia [Recovered/Resolved]
  - Thrombocytopenia [Unknown]
  - Neutropenia [Unknown]

NARRATIVE: CASE EVENT DATE: 20210317
